FAERS Safety Report 14558276 (Version 1)
Quarter: 2018Q1

REPORT INFORMATION
  Report Type: Spontaneous
  Country: US (occurrence: US)
  Receive Date: 20180221
  Receipt Date: 20180221
  Transmission Date: 20180509
  Serious: No
  Sender: FDA-Public Use
  Company Number: US-PERRIGO-17US024242

PATIENT
  Age: 83 Year
  Sex: Male
  Weight: 87.53 kg

DRUGS (1)
  1. LOPERAMIDE HYDROCHLORIDE. [Suspect]
     Active Substance: LOPERAMIDE HYDROCHLORIDE
     Indication: DIARRHOEA
     Dosage: 4 MG AFTER FIRST LOOSE STOOL, 2 MG AFTER TWO SUBSEQUENT LOOSE STOOLS
     Route: 048
     Dates: start: 20170602, end: 20170602

REACTIONS (3)
  - Haematochezia [Unknown]
  - Faeces discoloured [Unknown]
  - Expired product administered [Recovered/Resolved]

NARRATIVE: CASE EVENT DATE: 20170602
